FAERS Safety Report 7674324-9 (Version None)
Quarter: 2011Q3

REPORT INFORMATION
  Report Type: 
  Country: None (occurrence: None)
  Receive Date: 20110810
  Receipt Date: 20110728
  Transmission Date: 20111222
  Serious: No
  Sender: FDA-Public Use
  Company Number: US-B.I. PHARMACEUTICALS,INC./RIDGEFIELD-2011-BP-18746BP

PATIENT
  Sex: Female

DRUGS (3)
  1. ZOLOFT [Concomitant]
  2. CORGA [Concomitant]
     Indication: HYPERTENSION
  3. PRADAXA [Suspect]
     Indication: ATRIAL FIBRILLATION
     Dosage: 300 MG
     Route: 048
     Dates: start: 20110627

REACTIONS (4)
  - NAUSEA [None]
  - GASTROOESOPHAGEAL REFLUX DISEASE [None]
  - CHEST PAIN [None]
  - SALIVARY HYPERSECRETION [None]
